FAERS Safety Report 6674172-2 (Version None)
Quarter: 2010Q2

REPORT INFORMATION
  Report Type: 
  Country: None (occurrence: None)
  Receive Date: 20100407
  Receipt Date: 20100329
  Transmission Date: 20101027
  Serious: Yes (Other)
  Sender: FDA-Public Use
  Company Number: 2010EU001296

PATIENT
  Age: 74 Year
  Sex: Female
  Weight: 65 kg

DRUGS (7)
  1. SOLIFENACIN SUCCINATE (VESICARE) [Suspect]
     Indication: POLYURIA
     Dosage: 10 MG, UNKNOWN/D, ORAL
     Route: 048
     Dates: start: 20090319, end: 20100301
  2. CALCICHEW D3 (CALCIUM CARBONATE, COLECALCIFEROL) [Concomitant]
  3. ISPAGHULA HUSK (PLANTAGO OVATA HUSK) [Concomitant]
  4. OMEPRAZOLE [Concomitant]
  5. PROPRANOLOL HYDROCHLORIDE [Concomitant]
  6. SENNA (SENNOSIDE A+B) [Concomitant]
  7. SIMVASTATIN [Concomitant]

REACTIONS (1)
  - MEMORY IMPAIRMENT [None]
